FAERS Safety Report 6282977-5 (Version None)
Quarter: 2009Q3

REPORT INFORMATION
  Report Type: 
  Country: None (occurrence: None)
  Receive Date: 20090724
  Receipt Date: 20070611
  Transmission Date: 20100115
  Serious: Yes (Other)
  Sender: FDA-Public Use
  Company Number: US-ASTRAZENECA-2006UW23988

PATIENT
  Age: 10579 Day
  Sex: Female
  Weight: 98.4 kg

DRUGS (18)
  1. SEROQUEL [Suspect]
     Indication: PSYCHOTIC DISORDER
     Route: 048
     Dates: start: 20030227, end: 20030321
  2. SEROQUEL [Suspect]
     Route: 048
     Dates: start: 20030228, end: 20030321
  3. GEODON [Suspect]
     Route: 048
     Dates: start: 20030908
  4. ZYPREXA [Suspect]
     Route: 048
     Dates: start: 20020901
  5. ZYPREXA [Suspect]
     Dates: start: 20021015, end: 20030715
  6. TRILEPTAL [Suspect]
     Route: 048
     Dates: start: 20021205
  7. TRILEPTAL [Suspect]
     Dates: start: 20030101
  8. ATIVAN [Suspect]
     Indication: AGITATION
     Dosage: 0.5-8 MG PRN
     Route: 048
     Dates: start: 20020621
  9. ATIVAN [Suspect]
     Indication: INSOMNIA
     Dosage: 0.5-8 MG PRN
     Route: 048
     Dates: start: 20020621
  10. ATIVAN [Suspect]
     Dates: start: 20030101
  11. ATIVAN [Suspect]
     Dates: start: 20030101
  12. HALDOL [Concomitant]
     Indication: AGITATION
     Dosage: EVERY 4 HR PRN
     Route: 048
     Dates: start: 20020804
  13. HALDOL [Concomitant]
     Indication: PSYCHOTIC DISORDER
     Dosage: EVERY 4 HR PRN
     Route: 048
     Dates: start: 20020804
  14. HALDOL [Concomitant]
     Dates: start: 20031023
  15. HALDOL [Concomitant]
     Dates: start: 20031023
  16. RISPERDAL [Concomitant]
     Dates: start: 20000208, end: 20010516
  17. EFFEXOR [Concomitant]
     Route: 048
     Dates: start: 20030509
  18. ZOMIG [Concomitant]
     Indication: MIGRAINE
     Dosage: 5-10 DAILY PRN
     Route: 048
     Dates: start: 20020905

REACTIONS (3)
  - DIABETES MELLITUS [None]
  - INSULIN RESISTANCE [None]
  - NEUROPATHY PERIPHERAL [None]
